FAERS Safety Report 17929267 (Version 3)
Quarter: 2020Q3

REPORT INFORMATION
  Report Type: Spontaneous
  Country: JP (occurrence: JP)
  Receive Date: 20200623
  Receipt Date: 20200717
  Transmission Date: 20201103
  Serious: Yes (Death, Hospitalization)
  Sender: FDA-Public Use
  Company Number: JP-ROCHE-2628370

PATIENT
  Age: 63 Year
  Sex: Male
  Weight: 66 kg

DRUGS (8)
  1. POLAPREZINC [Concomitant]
     Active Substance: POLAPREZINC
     Dosage: DOSAGE IS UNCERTAIN.
     Route: 065
  2. NAIXAN [Concomitant]
     Active Substance: NAPROXEN SODIUM
  3. RINDERON [Concomitant]
  4. BRONUCK [Concomitant]
     Active Substance: BROMFENAC SODIUM
  5. TAKECAB [Concomitant]
     Active Substance: VONOPRAZAN FUMARATE
  6. CRAVIT [Concomitant]
     Active Substance: LEVOFLOXACIN
  7. TECENTRIQ [Suspect]
     Active Substance: ATEZOLIZUMAB
     Indication: NON-SMALL CELL LUNG CANCER
     Dosage: DOSAGE IS UNCERTAIN.
     Route: 041
  8. PRIMPERAN [Concomitant]
     Active Substance: METOCLOPRAMIDE HYDROCHLORIDE

REACTIONS (3)
  - Hypomagnesaemia [Not Recovered/Not Resolved]
  - Disease progression [Fatal]
  - Parathyroid disorder [Recovered/Resolved]

NARRATIVE: CASE EVENT DATE: 20200605
